FAERS Safety Report 21172059 (Version 1)
Quarter: 2022Q3

REPORT INFORMATION
  Report Type: Spontaneous
  Country: US (occurrence: US)
  Receive Date: 20220804
  Receipt Date: 20220804
  Transmission Date: 20221026
  Serious: No
  Sender: FDA-Public Use
  Company Number: US-GALDERMA-US2022009235

PATIENT

DRUGS (1)
  1. EPSOLAY [Suspect]
     Active Substance: BENZOYL PEROXIDE
     Dosage: 1 DOSAGE FORM, 3 DOSES
     Route: 061
     Dates: start: 2022, end: 20220702

REACTIONS (4)
  - Application site swelling [Unknown]
  - Application site erythema [Unknown]
  - Application site pain [Unknown]
  - Application site hypersensitivity [Unknown]

NARRATIVE: CASE EVENT DATE: 20220702
